FAERS Safety Report 19765588 (Version 1)
Quarter: 2021Q3

REPORT INFORMATION
  Report Type: Spontaneous
  Country: NO (occurrence: NO)
  Receive Date: 20210831
  Receipt Date: 20210831
  Transmission Date: 20211014
  Serious: Yes (Hospitalization)
  Sender: FDA-Public Use
  Company Number: NO-ACCORD-236621

PATIENT
  Age: 64 Year
  Sex: Female

DRUGS (12)
  1. METHOTREXATE. [Suspect]
     Active Substance: METHOTREXATE
     Indication: PSORIATIC ARTHROPATHY
     Route: 048
     Dates: end: 2020
  2. ATACAND [Concomitant]
     Active Substance: CANDESARTAN CILEXETIL
     Indication: HYPERTENSION
     Dosage: STRENGTH 32 MG MILLIGRAM(S)
     Route: 048
  3. DERMOVAL [Concomitant]
     Indication: PSORIASIS
     Dosage: STRENGTH 0.05 % PERCENT, WHEN NEEDED
  4. METOPROLOL SANDOZ [Concomitant]
     Active Substance: METOPROLOL
     Indication: HYPERTENSION
     Dosage: STRENGTH 200 MG,  MORNING
     Route: 048
  5. FOSAMAX [Concomitant]
     Active Substance: ALENDRONATE SODIUM
     Indication: OSTEOPOROSIS
     Route: 048
     Dates: start: 202010
  6. VAGIFEM [Concomitant]
     Active Substance: ESTRADIOL
     Dosage: STRENGTH 10 MICROGRAM(S)
  7. ZOCOR [Concomitant]
     Active Substance: SIMVASTATIN
     Indication: HYPERCHOLESTEROLAEMIA
     Dosage: STRENGTH 40 MG EVENING
     Route: 048
  8. ENSTILAR [Concomitant]
     Active Substance: BETAMETHASONE DIPROPIONATE\CALCIPOTRIENE HYDRATE
     Indication: PSORIASIS
  9. PANODIL [Concomitant]
     Active Substance: ACETAMINOPHEN
     Dosage: 1 UP TO X 3 WHEN NEEDED
  10. CALCIGRAN FORTE [Concomitant]
     Active Substance: CALCIUM CARBONATE\CHOLECALCIFEROL
     Dosage: STRENGTH 800 MG MILLIGRAM(S), 1000 MG MILLIGRAM(S)
  11. LEVAXIN [Concomitant]
     Active Substance: LEVOTHYROXINE SODIUM
     Dosage: 100 MICROGRAM PER DAY 5 DAYS PER WEEK, AND 125 MICROGRAM PER DAY TWO DAYS PER WEEK
     Route: 048
  12. NEXIUM [Concomitant]
     Active Substance: ESOMEPRAZOLE MAGNESIUM
     Indication: OESOPHAGITIS

REACTIONS (1)
  - Hodgkin^s disease [Recovered/Resolved]

NARRATIVE: CASE EVENT DATE: 201912
